FAERS Safety Report 6305248-7 (Version None)
Quarter: 2009Q3

REPORT INFORMATION
  Report Type: 
  Country: None (occurrence: None)
  Receive Date: 20090811
  Receipt Date: 20090730
  Transmission Date: 20100115
  Serious: Yes (Other)
  Sender: FDA-Public Use
  Company Number: PHEH2009US08459

PATIENT
  Sex: Female

DRUGS (5)
  1. ENABLEX [Suspect]
     Indication: HYPERTONIC BLADDER
     Dosage: 7.5 MG, UNK
     Route: 065
  2. DETROL [Suspect]
     Indication: HYPERTONIC BLADDER
     Dosage: UNK, UNK
     Route: 065
  3. VESICARE [Suspect]
     Indication: HYPERTONIC BLADDER
     Dosage: UNK, UNK
     Route: 065
  4. FOSAMAX [Concomitant]
     Dosage: UNK, UNK
     Route: 065
  5. TYLENOL (CAPLET) [Concomitant]
     Dosage: UNK, UNK
     Route: 065

REACTIONS (5)
  - CYSTOPEXY [None]
  - DIZZINESS [None]
  - DRUG INEFFECTIVE [None]
  - DRY EYE [None]
  - DRY MOUTH [None]
